FAERS Safety Report 8614654-7 (Version None)
Quarter: 2012Q3

REPORT INFORMATION
  Report Type: 
  Country: None (occurrence: None)
  Receive Date: 20120823
  Receipt Date: 20120822
  Transmission Date: 20120928
  Serious: Yes (Death, Other)
  Sender: FDA-Public Use
  Company Number: PHHY2012NL055887

PATIENT
  Sex: Male

DRUGS (6)
  1. PREDNISONE TAB [Concomitant]
     Dosage: 5 MG, 2DD5MG
     Dates: start: 20120118
  2. ZOMETA [Suspect]
     Dosage: 4 MG/100 ML EVERY 5 WEEKS
     Dates: start: 20120105, end: 20120101
  3. ZOMETA [Suspect]
     Indication: METASTASES TO BONE
     Dosage: 4 MG/100 ML EVERY 5 WEEKS
     Dates: start: 20110201
  4. DOCETAXEL [Concomitant]
     Dosage: ONCE EVERY 3 WEEKS
     Route: 042
     Dates: start: 20120118
  5. ZOMETA [Suspect]
     Dosage: 4 MG/100 ML EVERY 5 WEEKS
     Dates: start: 20110301
  6. ZOMETA [Suspect]
     Dosage: 4 MG/100 ML EVERY 5 WEEKS
     Dates: start: 20111130

REACTIONS (3)
  - SEPTIC SHOCK [None]
  - ABDOMINAL DISCOMFORT [None]
  - CLOSTRIDIAL INFECTION [None]
